FAERS Safety Report 17041300 (Version 1)
Quarter: 2019Q4

REPORT INFORMATION
  Report Type: Spontaneous
  Country: GB (occurrence: GB)
  Receive Date: 20191118
  Receipt Date: 20191118
  Transmission Date: 20200122
  Serious: Yes (Other)
  Sender: FDA-Public Use
  Company Number: GB-TEVA-2019-GB-1137283

PATIENT
  Age: 71 Year
  Sex: Female
  Weight: 63 kg

DRUGS (19)
  1. LANSOPRAZOLE. [Concomitant]
     Active Substance: LANSOPRAZOLE
     Dates: start: 20180116
  2. FERROUS SULFATE. [Concomitant]
     Active Substance: FERROUS SULFATE
     Dates: start: 20170901
  3. BECONASE AQ [Concomitant]
     Active Substance: BECLOMETHASONE DIPROPIONATE MONOHYDRATE
     Dosage: PUFFS
     Dates: start: 20170901
  4. CHOLINE SALICYLATE [Concomitant]
     Active Substance: CHOLINE SALICYLATE
     Dosage: USE AS DIRECTED
     Dates: start: 20180116, end: 20180123
  5. DOMPERIDONE [Concomitant]
     Active Substance: DOMPERIDONE
     Dosage: USE AS DIRECTED
     Dates: start: 20180116, end: 20180123
  6. ACETYLSALICYLIC ACID [Concomitant]
     Active Substance: ASPIRIN
     Dates: start: 20170901
  7. SYSTANE (HYPROMELLOSE 2910 (4000 MPA.S)) [Concomitant]
     Active Substance: HYPROMELLOSE 2910 (4000 MPA.S)
     Dosage: APPLY 2-3 TIMES
     Dates: start: 20171026
  8. PARACETAMOL [Concomitant]
     Active Substance: ACETAMINOPHEN
     Dosage: TAKE 1 OR 2 4 TIMES/DAY
     Dates: start: 20180116, end: 20180118
  9. RANITIDINE. [Concomitant]
     Active Substance: RANITIDINE
     Dates: start: 20170707, end: 20171129
  10. FENBID [Concomitant]
     Active Substance: IBUPROFEN
     Dosage: APPLY UP TO FOUR TIMES DAILY
     Dates: start: 20170901
  11. SIMVASTATIN. [Concomitant]
     Active Substance: SIMVASTATIN
     Dosage: AT NIGHT
     Dates: start: 20170901
  12. SALBUTAMOL [Concomitant]
     Active Substance: ALBUTEROL
     Route: 055
     Dates: start: 20171129, end: 20171130
  13. ACIDEX [Concomitant]
     Active Substance: CALCIUM CARBONATE\SODIUM ALGINATE\SODIUM BICARBONATE
     Dosage: USE AS DIRECTED
     Dates: start: 20171220, end: 20171227
  14. OXYBUTYNIN. [Concomitant]
     Active Substance: OXYBUTYNIN CHLORIDE
     Dates: start: 20170901
  15. NITROFURANTOIN. [Suspect]
     Active Substance: NITROFURANTOIN
     Route: 065
     Dates: start: 20180209
  16. CYANOCOBALAMIN. [Concomitant]
     Active Substance: CYANOCOBALAMIN
     Dates: start: 20170901
  17. LISINOPRIL. [Concomitant]
     Active Substance: LISINOPRIL
     Dates: start: 20170803
  18. SUKKARTO [Concomitant]
     Active Substance: METFORMIN HYDROCHLORIDE
     Dates: start: 20171026
  19. CLENIL MODULITE [Concomitant]
     Active Substance: BECLOMETHASONE DIPROPIONATE
     Dosage: PUFF
     Dates: start: 20170901

REACTIONS (1)
  - Insomnia [Recovering/Resolving]

NARRATIVE: CASE EVENT DATE: 20180209
